FAERS Safety Report 23738063 (Version 1)
Quarter: 2024Q2

REPORT INFORMATION
  Report Type: Spontaneous
  Country: US (occurrence: None)
  Receive Date: 20240412
  Receipt Date: 20240412
  Transmission Date: 20240716
  Serious: Yes (Other)
  Sender: FDA-Public Use
  Company Number: 2024A083128

PATIENT

DRUGS (1)
  1. IMFINZI [Suspect]
     Active Substance: DURVALUMAB

REACTIONS (3)
  - Metastases to lung [Unknown]
  - Metastases to liver [Unknown]
  - Confusional state [Unknown]
